FAERS Safety Report 13847134 (Version 4)
Quarter: 2018Q4

REPORT INFORMATION
  Report Type: Report from Study
  Country: US (occurrence: US)
  Receive Date: 20170808
  Receipt Date: 20181029
  Transmission Date: 20190204
  Serious: Yes (Hospitalization)
  Sender: FDA-Public Use
  Company Number: US-ACTELION-A-US2017-157741

PATIENT
  Age: 48 Year
  Sex: Female

DRUGS (5)
  1. ADCIRCA [Concomitant]
     Active Substance: TADALAFIL
  2. UPTRAVI [Suspect]
     Active Substance: SELEXIPAG
     Dosage: 800 MCG, BID
     Route: 048
     Dates: start: 20170711
  3. UPTRAVI [Suspect]
     Active Substance: SELEXIPAG
     Dosage: 1200 MCG, BID
     Route: 048
  4. UPTRAVI [Suspect]
     Active Substance: SELEXIPAG
     Indication: PULMONARY ARTERIAL HYPERTENSION
     Dosage: 600 MCG, BID
     Route: 048
     Dates: start: 20170710
  5. LETAIRIS [Concomitant]
     Active Substance: AMBRISENTAN

REACTIONS (9)
  - Pain in extremity [Unknown]
  - Diabetic neuropathy [Unknown]
  - Back pain [Unknown]
  - Myalgia [Unknown]
  - Therapy non-responder [Unknown]
  - Diarrhoea [Recovered/Resolved]
  - Headache [Unknown]
  - Dehydration [Unknown]
  - Condition aggravated [Unknown]

NARRATIVE: CASE EVENT DATE: 20170723
